FAERS Safety Report 8764110 (Version 1)
Quarter: 2012Q4

REPORT INFORMATION
  Report Type: 
  Country: ZA (occurrence: ZA)
  Receive Date: 20120831
  Receipt Date: 20120831
  Transmission Date: 20130627
  Serious: Yes (Other)
  Sender: FDA-Public Use
  Company Number: ZA-NOVOPROD-349109

PATIENT
  Sex: Female

DRUGS (1)
  1. NOVOMIX 30 FLEXPEN [Suspect]
     Indication: GESTATIONAL DIABETES
     Dosage: unknown
     Route: 065
     Dates: start: 20120208

REACTIONS (2)
  - Stillbirth [Recovered/Resolved with Sequelae]
  - Exposure during pregnancy [Unknown]
